FAERS Safety Report 19656213 (Version 1)
Quarter: 2021Q3

REPORT INFORMATION
  Report Type: Spontaneous
  Country: SA (occurrence: SA)
  Receive Date: 20210804
  Receipt Date: 20210804
  Transmission Date: 20211014
  Serious: Yes (Death, Life-Threatening, Other)
  Sender: FDA-Public Use
  Company Number: SA-BRAINTREE LABORATORIES, INC.-2021BTE00634

PATIENT
  Age: 5 Year
  Sex: Male

DRUGS (1)
  1. GOLYTELY [Suspect]
     Active Substance: POLYETHYLENE GLYCOL 3350\POTASSIUM CHLORIDE\SODIUM BICARBONATE\SODIUM CHLORIDE\SODIUM SULFATE
     Indication: BOWEL PREPARATION
     Dosage: 375 ML, ONCE, UNDILUTED (THE PROTOCOL WAS 25 MG/KG/HOUR, DILUTED)
     Route: 048

REACTIONS (14)
  - Multiple organ dysfunction syndrome [Fatal]
  - Diarrhoea [Unknown]
  - Lethargy [Unknown]
  - Hypernatraemia [Unknown]
  - Pulseless electrical activity [Recovered/Resolved]
  - Hypovolaemic shock [Unknown]
  - Loss of consciousness [Unknown]
  - Supraventricular tachycardia [Recovered/Resolved]
  - Brain death [Fatal]
  - Product preparation error [Fatal]
  - Cardiac arrest [Recovered/Resolved]
  - Ventricular tachycardia [Fatal]
  - Haemoconcentration [Unknown]
  - Poor peripheral circulation [Unknown]
